FAERS Safety Report 25062129 (Version 1)
Quarter: 2025Q1

REPORT INFORMATION
  Report Type: Spontaneous
  Country: HU (occurrence: HU)
  Receive Date: 20250311
  Receipt Date: 20250311
  Transmission Date: 20250409
  Serious: Yes (Other)
  Sender: ROCHE
  Company Number: HU-ROCHE-10000223970

PATIENT
  Age: 47 Year
  Sex: Female

DRUGS (1)
  1. ALECENSA [Suspect]
     Active Substance: ALECTINIB HYDROCHLORIDE
     Indication: Product used for unknown indication
     Route: 065
     Dates: start: 20181005, end: 20240816

REACTIONS (2)
  - Hemiparesis [Unknown]
  - Facial paresis [Unknown]

NARRATIVE: CASE EVENT DATE: 20240125
